FAERS Safety Report 22607623 (Version 1)
Quarter: 2023Q2

REPORT INFORMATION
  Report Type: Report from Study
  Country: GB (occurrence: GB)
  Receive Date: 20230616
  Receipt Date: 20230616
  Transmission Date: 20230721
  Serious: Yes (Other)
  Sender: FDA-Public Use
  Company Number: GB-TAKEDA-2023TUS033970

PATIENT
  Age: 19 Year
  Sex: Female

DRUGS (2)
  1. BRIGATINIB [Suspect]
     Active Substance: BRIGATINIB
     Indication: Anaplastic large-cell lymphoma
     Dosage: 90 MILLIGRAM
     Route: 065
     Dates: start: 20230306, end: 20230513
  2. BRIGATINIB [Suspect]
     Active Substance: BRIGATINIB
     Dosage: 180 MILLIGRAM
     Route: 065
     Dates: start: 20230513, end: 20230519

REACTIONS (3)
  - Anaplastic large-cell lymphoma [Unknown]
  - Hypertransaminasaemia [Recovered/Resolved]
  - AST/ALT ratio abnormal [Recovered/Resolved]

NARRATIVE: CASE EVENT DATE: 20230311
